FAERS Safety Report 5367113-1 (Version None)
Quarter: 2007Q2

REPORT INFORMATION
  Report Type: 
  Country: None (occurrence: None)
  Receive Date: 20070622
  Receipt Date: 20060605
  Transmission Date: 20071010
  Serious: No
  Sender: FDA-Public Use
  Company Number: US-BRISTOL-MYERS SQUIBB COMPANY-13401922

PATIENT
  Age: 59 Year
  Sex: Female
  Weight: 68 kg

DRUGS (3)
  1. SINEMET [Suspect]
     Indication: PARKINSON'S DISEASE
     Dosage: DURATION OF THERAPY:  ^MANY YEARS^
     Route: 048
  2. VITAMIN [Concomitant]
  3. ASPIRIN [Concomitant]
     Dosage: DURATION OF THERAPY:  ^MANY YEARS^

REACTIONS (1)
  - DRUG INEFFECTIVE [None]
